FAERS Safety Report 7207259-6 (Version None)
Quarter: 2011Q1

REPORT INFORMATION
  Report Type: 
  Country: None (occurrence: None)
  Receive Date: 20110103
  Receipt Date: 20101229
  Transmission Date: 20110831
  Serious: Yes (Hospitalization)
  Sender: FDA-Public Use
  Company Number: GB-ROCHE-750743

PATIENT
  Sex: Female
  Weight: 66.9 kg

DRUGS (6)
  1. ATENOLOL [Concomitant]
     Indication: HYPERTENSION
     Route: 048
  2. LISINOPRIL [Concomitant]
     Indication: HYPERTENSION
     Route: 048
  3. SIMVASTATIN [Concomitant]
     Route: 048
  4. DOCETAXEL [Suspect]
     Indication: BREAST CANCER
     Route: 065
     Dates: start: 20101209
  5. BEVACIZUMAB [Suspect]
     Indication: BREAST CANCER
     Dosage: CYCLE 2
     Route: 065
     Dates: start: 20101209
  6. BENDROFLUMETHIAZID [Concomitant]
     Indication: HYPERTENSION
     Route: 048

REACTIONS (4)
  - OESOPHAGITIS [None]
  - NEUTROPENIA [None]
  - COUGH [None]
  - PYREXIA [None]
